FAERS Safety Report 8325229-1 (Version None)
Quarter: 2012Q2

REPORT INFORMATION
  Report Type: 
  Country: None (occurrence: None)
  Receive Date: 20120501
  Receipt Date: 20120425
  Transmission Date: 20120825
  Serious: Yes (Death)
  Sender: FDA-Public Use
  Company Number: US-ROCHE-1052117

PATIENT
  Sex: Male
  Weight: 113.99 kg

DRUGS (11)
  1. DEXAMETHASONE [Concomitant]
     Indication: BRAIN NEOPLASM
     Route: 048
     Dates: start: 20110708, end: 20111103
  2. CITALOPRAM HYDROBROMIDE [Concomitant]
     Indication: CONVULSION
     Route: 048
  3. CARBAMAZEPINE [Concomitant]
     Indication: CONVULSION
     Route: 048
     Dates: start: 20110222
  4. TRAZODONE HCL [Concomitant]
     Indication: INSOMNIA
     Route: 048
     Dates: start: 20110222, end: 20111103
  5. VALPROIC ACID [Concomitant]
     Indication: CONVULSION
     Route: 048
     Dates: start: 20110222, end: 20111103
  6. SCOPOLAMINE HYDROBROMIDE [Concomitant]
     Dosage: INDICATION: ANTISIALAGOGUE
     Dates: start: 20110222, end: 20111103
  7. AVASTIN [Suspect]
     Indication: ANAPLASTIC ASTROCYTOMA
     Route: 042
     Dates: start: 20110303, end: 20110715
  8. NORVASC [Concomitant]
     Indication: HYPERTENSION
     Route: 048
     Dates: start: 20110324, end: 20111103
  9. CELEBREX [Concomitant]
     Indication: BRAIN NEOPLASM
     Route: 048
     Dates: start: 20110708, end: 20111103
  10. ALDACTONE [Concomitant]
     Indication: HYPERTENSION
     Route: 048
     Dates: start: 20110323, end: 20111103
  11. XELODA [Concomitant]
     Indication: BRAIN NEOPLASM
     Route: 048
     Dates: start: 20110418, end: 20111101

REACTIONS (2)
  - DEATH [None]
  - HYPERTENSION [None]
